FAERS Safety Report 14936957 (Version 1)
Quarter: 2018Q2

REPORT INFORMATION
  Report Type: Spontaneous
  Country: BR (occurrence: BR)
  Receive Date: 20180525
  Receipt Date: 20180525
  Transmission Date: 20180711
  Serious: Yes (Other)
  Sender: FDA-Public Use
  Company Number: BR-ORION CORPORATION ORION PHARMA-ENTC2017-0478

PATIENT
  Sex: Female
  Weight: 77 kg

DRUGS (1)
  1. STALEVO [Suspect]
     Active Substance: CARBIDOPA\ENTACAPONE\LEVODOPA
     Indication: PARKINSON^S DISEASE
     Dosage: STRENGTH: 100/25/200 MG; 1 TAB MORNING (AFTER BREAKFAST) AND 1 IN NIGHT (AFTER DINNER)
     Route: 065

REACTIONS (7)
  - Dry mouth [Recovering/Resolving]
  - Liver injury [Unknown]
  - Hypoaesthesia oral [Unknown]
  - Ageusia [Recovering/Resolving]
  - Pyrexia [Recovering/Resolving]
  - Musculoskeletal stiffness [Recovering/Resolving]
  - Chromaturia [Recovering/Resolving]
